FAERS Safety Report 7011673-1 (Version None)
Quarter: 2010Q3

REPORT INFORMATION
  Report Type: 
  Country: None (occurrence: None)
  Receive Date: 20100923
  Receipt Date: 20090423
  Transmission Date: 20110219
  Serious: No
  Sender: FDA-Public Use
  Company Number: US-WYE-H09125609

PATIENT
  Sex: Female

DRUGS (2)
  1. PREMARIN [Suspect]
     Indication: HOT FLUSH
     Dosage: UNKNOWN
     Route: 065
     Dates: start: 20060301, end: 20060401
  2. PREMARIN [Suspect]
     Indication: MENOPAUSE

REACTIONS (1)
  - BREAST MASS [None]
